FAERS Safety Report 20663312 (Version 1)
Quarter: 2022Q2

REPORT INFORMATION
  Report Type: Spontaneous
  Country: US (occurrence: US)
  Receive Date: 20220401
  Receipt Date: 20220401
  Transmission Date: 20220720
  Serious: No
  Sender: FDA-Public Use
  Company Number: US-BIOVITRUM-2022US04378

PATIENT
  Sex: Female
  Weight: 4.54 kg

DRUGS (7)
  1. SYNAGIS [Suspect]
     Active Substance: PALIVIZUMAB
     Indication: Antiviral prophylaxis
     Route: 030
     Dates: start: 20220127
  2. PULMICORT TURBUHALER [Concomitant]
     Active Substance: BUDESONIDE
     Dosage: 0.25MG/2ML
  3. VITAMINS [Concomitant]
     Active Substance: VITAMINS
     Dosage: 250-50/ML DROPS
  4. DIURIL [Concomitant]
     Active Substance: CHLOROTHIAZIDE
     Dosage: 250MG/5ML ORAL SUSPENSION
  5. ALDACTONE [Concomitant]
     Active Substance: SPIRONOLACTONE
  6. LASIX [Concomitant]
     Active Substance: FUROSEMIDE
  7. SODIUM CHLORIDE [Concomitant]
     Active Substance: SODIUM CHLORIDE
     Dosage: 0.9% VIAL

REACTIONS (1)
  - Vomiting [Unknown]
